FAERS Safety Report 22355965 (Version 2)
Quarter: 2023Q2

REPORT INFORMATION
  Report Type: Spontaneous
  Country: IE (occurrence: IE)
  Receive Date: 20230523
  Receipt Date: 20230608
  Transmission Date: 20230722
  Serious: Yes (Other)
  Sender: FDA-Public Use
  Company Number: IE-JNJFOC-20230526322

PATIENT
  Age: 63 Year
  Sex: Female

DRUGS (7)
  1. RITUXIMAB [Suspect]
     Active Substance: RITUXIMAB
     Indication: Bing-Neel syndrome
     Dosage: UNK, WEEKLY
     Route: 058
  2. RITUXIMAB [Suspect]
     Active Substance: RITUXIMAB
     Dosage: UNK, MONTHLY, 2 DOSES
     Route: 058
  3. METHOTREXATE SODIUM [Suspect]
     Active Substance: METHOTREXATE SODIUM
     Indication: Bing-Neel syndrome
     Dosage: UNK
     Route: 037
  4. METHOTREXATE SODIUM [Suspect]
     Active Substance: METHOTREXATE SODIUM
     Dosage: HIGH-DOSE (3.5 G/M2) FOR SECOND AND THIRD CYCLES (TWO CYCLES OF HIGH DOSE)
     Route: 042
  5. DEXAMETHASONE SODIUM PHOSPHATE [Suspect]
     Active Substance: DEXAMETHASONE SODIUM PHOSPHATE
     Indication: Bing-Neel syndrome
     Dosage: 40MG (FORTNIGHTLY)
     Route: 048
  6. IMBRUVICA [Suspect]
     Active Substance: IBRUTINIB
     Indication: Bing-Neel syndrome
     Dosage: 420 MG, 1X/DAY
     Route: 048
  7. METHYLPREDNISOLONE [Concomitant]
     Active Substance: METHYLPREDNISOLONE
     Dosage: 1 G
     Route: 042

REACTIONS (4)
  - Bing-Neel syndrome [Unknown]
  - Disease recurrence [Unknown]
  - Off label use [Unknown]
  - Off label use [Unknown]
